FAERS Safety Report 18147110 (Version 6)
Quarter: 2021Q1

REPORT INFORMATION
  Report Type: Report from Study
  Country: MX (occurrence: MX)
  Receive Date: 20200813
  Receipt Date: 20210104
  Transmission Date: 20210419
  Serious: Yes (Death, Hospitalization, Other)
  Sender: FDA-Public Use
  Company Number: MX-JNJFOC-20200810914

PATIENT
  Age: 44 Year
  Sex: Female
  Weight: 58 kg

DRUGS (1)
  1. SIMPONI [Suspect]
     Active Substance: GOLIMUMAB
     Indication: RHEUMATOID ARTHRITIS
     Route: 058
     Dates: start: 20200515, end: 20200623

REACTIONS (6)
  - Pleural effusion [Unknown]
  - Tachycardia [Unknown]
  - Cardiac disorder [Not Recovered/Not Resolved]
  - COVID-19 [Unknown]
  - Pulmonary fibrosis [Fatal]
  - Autoimmune disorder [Unknown]

NARRATIVE: CASE EVENT DATE: 202005
